FAERS Safety Report 9191206 (Version 1)
Quarter: 2013Q1

REPORT INFORMATION
  Report Type: Spontaneous
  Country: US (occurrence: US)
  Receive Date: 20130326
  Receipt Date: 20130326
  Transmission Date: 20140127
  Serious: Yes (Hospitalization, Other)
  Sender: FDA-Public Use
  Company Number: US-TEVA-393496USA

PATIENT
  Age: 33 Year
  Sex: Male

DRUGS (4)
  1. TRISENOX [Suspect]
     Indication: ACUTE PROMYELOCYTIC LEUKAEMIA
     Dosage: 0.1 MG/KG EVERY OTHER DAY FOR 60D, THEN 0.15 MG/KG EVERY OTHER DAY
     Route: 042
  2. TRISENOX [Suspect]
     Indication: ACUTE PROMYELOCYTIC LEUKAEMIA
     Dosage: 0.15 MG/KG EVERY OTHER DAY FOR ANOTHER 60D
     Route: 042
  3. TRISENOX [Suspect]
     Indication: ACUTE PROMYELOCYTIC LEUKAEMIA
     Dosage: 0.1 MG/KG ON MON, WED, FRI
     Route: 065
  4. HAART [Concomitant]
     Indication: ACQUIRED IMMUNODEFICIENCY SYNDROME

REACTIONS (4)
  - Diabetes mellitus [Unknown]
  - Pancreatitis [Unknown]
  - Fatigue [Unknown]
  - Hypertriglyceridaemia [Unknown]
